FAERS Safety Report 17696995 (Version 1)
Quarter: 2020Q2

REPORT INFORMATION
  Report Type: Spontaneous
  Country: NL (occurrence: NL)
  Receive Date: 20200423
  Receipt Date: 20200423
  Transmission Date: 20200714
  Serious: Yes (Life-Threatening)
  Sender: FDA-Public Use
  Company Number: NL-B.I. PHARMACEUTICALS,INC./RIDGEFIELD-2020-12-020815

PATIENT
  Age: 43 Year
  Sex: Female
  Weight: 51 kg

DRUGS (14)
  1. NORTRIPTYLINE [Concomitant]
     Active Substance: NORTRIPTYLINE
     Indication: PRODUCT USED FOR UNKNOWN INDICATION
     Dosage: TABLET, 50 MG (MILLIGRAM)
     Route: 065
  2. VENTOLIN [Concomitant]
     Active Substance: ALBUTEROL SULFATE
     Indication: PRODUCT USED FOR UNKNOWN INDICATION
     Dosage: AEROSOL, 100 ?G/DOSIS (MICROGRAM PER DOSIS)
     Route: 065
  3. GABAPENTINE [Concomitant]
     Active Substance: GABAPENTIN
     Indication: PRODUCT USED FOR UNKNOWN INDICATION
     Dosage: CAPSULE, 300 MG (MILLIGRAM)
     Route: 065
  4. JARDIANCE [Suspect]
     Active Substance: EMPAGLIFLOZIN
     Indication: TYPE 2 DIABETES MELLITUS
     Dosage: 1X PER DAG 1 STUK
     Route: 065
     Dates: start: 20160704
  5. ETHINYLESTRADIOL/DROSPIRENONE [Concomitant]
     Active Substance: DROSPIRENONE\ETHINYL ESTRADIOL
     Indication: PRODUCT USED FOR UNKNOWN INDICATION
     Dosage: ONBEKEND, VOLGENS VOORSCHRIFT
     Route: 065
  6. OMEPRAZOL [OMEPRAZOLE] [Concomitant]
     Active Substance: OMEPRAZOLE
     Indication: PRODUCT USED FOR UNKNOWN INDICATION
     Dosage: MAAGSAPRESISTENTE CAPSULE, 40 MG (MILLIGRAM)
     Route: 065
  7. PROMETHAZINE [Concomitant]
     Active Substance: PROMETHAZINE HYDROCHLORIDE
     Indication: PRODUCT USED FOR UNKNOWN INDICATION
     Dosage: OMHULDE TABLET, 25 MG (MILLIGRAM)
     Route: 065
  8. TACROLIMUS. [Concomitant]
     Active Substance: TACROLIMUS
     Indication: PRODUCT USED FOR UNKNOWN INDICATION
     Dosage: ZALF, 1 MG/G (MILLIGRAM PER GRAM)
     Route: 065
  9. PRAVASTATINE [PRAVASTATIN] [Concomitant]
     Active Substance: PRAVASTATIN
     Indication: PRODUCT USED FOR UNKNOWN INDICATION
     Dosage: TABLET, 40 MG (MILLIGRAM)
     Route: 065
  10. QUETIAPINE. [Concomitant]
     Active Substance: QUETIAPINE
     Indication: PRODUCT USED FOR UNKNOWN INDICATION
     Dosage: TABLET MET GEREGULEERDE AFGIFTE, 50 MG (MILLIGRAM)
     Route: 065
  11. GALVUS [Concomitant]
     Active Substance: VILDAGLIPTIN
     Indication: PRODUCT USED FOR UNKNOWN INDICATION
     Dosage: TABLET, 50 MG (MILLIGRAM)
     Route: 065
  12. CALCIUMCARBONAAT [Concomitant]
     Indication: PRODUCT USED FOR UNKNOWN INDICATION
     Dosage: KAUWTABLET, 1,25 G (GRAM)/800 EENHEDEN
     Route: 065
  13. MIZOLASTINE [Concomitant]
     Active Substance: MIZOLASTINE
     Indication: PRODUCT USED FOR UNKNOWN INDICATION
     Dosage: TABLET MET GEREGULEERDE AFGIFTE, 10 MG (MILLIGRAM)
     Route: 065
  14. BUDESONIDE;FORMOTEROL [Concomitant]
     Active Substance: BUDESONIDE\FORMOTEROL
     Indication: PRODUCT USED FOR UNKNOWN INDICATION
     Dosage: INHALATIEPOEDER, 160/4,5 ?G/DOSIS (MICROGRAM PER DOSIS)
     Route: 065

REACTIONS (1)
  - Diabetic ketoacidosis [Not Recovered/Not Resolved]

NARRATIVE: CASE EVENT DATE: 20200406
